FAERS Safety Report 20863356 (Version 1)
Quarter: 2022Q2

REPORT INFORMATION
  Report Type: Spontaneous
  Country: TW (occurrence: TW)
  Receive Date: 20220523
  Receipt Date: 20220523
  Transmission Date: 20220720
  Serious: Yes (Life-Threatening, Other)
  Sender: FDA-Public Use
  Company Number: TW-INNOCOLL PHARMACEUTICALS LIMITED-2022INN00004

PATIENT
  Age: 69 Year
  Sex: Female
  Weight: 44.6 kg

DRUGS (6)
  1. BUPIVACAINE [Suspect]
     Active Substance: BUPIVACAINE
     Indication: Spinal anaesthesia
     Dosage: 13 MG, ONCE
     Route: 037
  2. BUPIVACAINE [Suspect]
     Active Substance: BUPIVACAINE
     Indication: Hip arthroplasty
  3. BUPIVACAINE [Suspect]
     Active Substance: BUPIVACAINE
     Indication: Spinal anaesthesia
     Dosage: 13 MG, ONCE
     Route: 037
  4. BUPIVACAINE [Suspect]
     Active Substance: BUPIVACAINE
     Indication: Hip arthroplasty
  5. UNSPECIFIED INGREDIENT [Concomitant]
     Active Substance: UNSPECIFIED INGREDIENT
     Route: 065
  6. OXYGEN [Concomitant]
     Active Substance: OXYGEN
     Route: 065

REACTIONS (1)
  - Anaphylactic reaction [Recovered/Resolved]
